FAERS Safety Report 7770163-9 (Version None)
Quarter: 2011Q3

REPORT INFORMATION
  Report Type: 
  Country: None (occurrence: None)
  Receive Date: 20110922
  Receipt Date: 20110915
  Transmission Date: 20111222
  Serious: Yes (Death, Hospitalization)
  Sender: FDA-Public Use
  Company Number: GB-TEVA-300857ISR

PATIENT
  Age: 45 Year
  Sex: Female

DRUGS (1)
  1. PREDNISOLONE [Suspect]
     Indication: VIITH NERVE PARALYSIS
     Dosage: 50MG DAILY TAPERING FOR 10 DAYS

REACTIONS (4)
  - PNEUMONIA NECROTISING [None]
  - PULMONARY TUBERCULOSIS [None]
  - HAEMOPTYSIS [None]
  - PYREXIA [None]
